FAERS Safety Report 13263490 (Version 1)
Quarter: 2017Q1

REPORT INFORMATION
  Report Type: Spontaneous
  Country: US (occurrence: US)
  Receive Date: 20170222
  Receipt Date: 20170222
  Transmission Date: 20170428
  Serious: Yes (Other)
  Sender: FDA-Public Use
  Company Number: None

PATIENT
  Age: 25 Year
  Sex: Male
  Weight: 85.73 kg

DRUGS (1)
  1. MORPHINE 2MG HOSPIRA [Suspect]
     Active Substance: MORPHINE
     Indication: PAIN
     Dosage: 2MG X1 IV PUSH
     Dates: start: 20170219

REACTIONS (1)
  - Pruritus [None]

NARRATIVE: CASE EVENT DATE: 20170219
